FAERS Safety Report 9859501 (Version 2)
Quarter: 2014Q1

REPORT INFORMATION
  Report Type: Spontaneous
  Country: US (occurrence: US)
  Receive Date: 20140131
  Receipt Date: 20140131
  Transmission Date: 20141002
  Serious: Yes (Hospitalization)
  Sender: FDA-Public Use
  Company Number: US-B.I. PHARMACEUTICALS,INC./RIDGEFIELD-2012-BP-11023BP

PATIENT
  Sex: Female
  Weight: 58.97 kg

DRUGS (18)
  1. PRADAXA [Suspect]
     Dosage: 300 MG
     Dates: start: 20110418, end: 20110603
  2. VITEYES [Concomitant]
  3. LASIX [Concomitant]
     Dates: start: 201102, end: 201107
  4. ADVAIR [Concomitant]
     Dates: start: 201008, end: 201107
  5. SPIRIVA [Concomitant]
     Dates: start: 201102, end: 201105
  6. KLONOPIN [Concomitant]
     Dates: start: 200811, end: 201111
  7. PLAVIX [Concomitant]
     Dates: start: 201102, end: 201210
  8. SIMVASTATIN [Concomitant]
     Dates: start: 200911, end: 201107
  9. AMARYL [Concomitant]
  10. PROAIR [Concomitant]
  11. PATADAY [Concomitant]
  12. NEXIUM [Concomitant]
     Dates: start: 200911, end: 201111
  13. BYSTOLIC [Concomitant]
     Dates: start: 201104, end: 201210
  14. PROZAC [Concomitant]
     Dates: start: 201102, end: 201107
  15. MIRTAZAPINE [Concomitant]
  16. LOSARTAN [Concomitant]
  17. KLOR-CON [Concomitant]
     Dates: start: 201102, end: 201111
  18. SOTALOL [Concomitant]
     Dates: start: 201101, end: 201108

REACTIONS (1)
  - Rectal haemorrhage [Unknown]
